FAERS Safety Report 4525320-1 (Version None)
Quarter: 2004Q4

REPORT INFORMATION
  Report Type: 
  Country: None (occurrence: None)
  Receive Date: 20041213
  Receipt Date: 20041130
  Transmission Date: 20050328
  Serious: Yes (Hospitalization)
  Sender: FDA-Public Use
  Company Number: 200414490FR

PATIENT
  Age: 21 Year
  Sex: Male

DRUGS (2)
  1. CLAFORAN [Suspect]
     Route: 042
     Dates: start: 20040901, end: 20041021
  2. OMEPRAZOLE [Suspect]
     Dates: start: 20041008, end: 20041022

REACTIONS (4)
  - AGRANULOCYTOSIS [None]
  - DUODENAL ULCER HAEMORRHAGE [None]
  - HAEMOGLOBIN DECREASED [None]
  - WHITE BLOOD CELL COUNT DECREASED [None]
